FAERS Safety Report 6348279-3 (Version None)
Quarter: 2009Q3

REPORT INFORMATION
  Report Type: 
  Country: None (occurrence: None)
  Receive Date: 20090908
  Receipt Date: 20090824
  Transmission Date: 20100115
  Serious: Yes (Other)
  Sender: FDA-Public Use
  Company Number: 1000008645

PATIENT
  Age: 50 Year
  Sex: Male

DRUGS (2)
  1. LEXAPRO [Suspect]
     Indication: MAJOR DEPRESSION
     Dosage: 10 MG (10 MG, 1 IN 1 D), ORAL
     Route: 048
     Dates: start: 20090701, end: 20090820
  2. VALPROIC ACID (250 MILLIGRAM, TABLETS) [Concomitant]

REACTIONS (1)
  - PARKINSONISM [None]
